FAERS Safety Report 11272008 (Version 1)
Quarter: 2015Q3

REPORT INFORMATION
  Report Type: Spontaneous
  Country: US (occurrence: None)
  Receive Date: 20150713
  Receipt Date: 20150713
  Transmission Date: 20151125
  Serious: Yes (Other)
  Sender: FDA-Public Use
  Company Number: None

PATIENT
  Age: 59 Year
  Sex: Male

DRUGS (1)
  1. SYNTHROID [Suspect]
     Active Substance: LEVOTHYROXINE SODIUM
     Indication: HYPOTHYROIDISM
     Dosage: 250MCG QD ORAL?APPROX 10 YEARS
     Route: 048

REACTIONS (5)
  - Headache [None]
  - Drug ineffective [None]
  - Product formulation issue [None]
  - Drug level decreased [None]
  - Product quality issue [None]

NARRATIVE: CASE EVENT DATE: 20150410
